FAERS Safety Report 12634455 (Version 3)
Quarter: 2016Q4

REPORT INFORMATION
  Report Type: Report from Study
  Country: US (occurrence: US)
  Receive Date: 20160808
  Receipt Date: 20161003
  Transmission Date: 20170207
  Serious: Yes (Other)
  Sender: FDA-Public Use
  Company Number: US-ALEXION-A201605689

PATIENT
  Sex: Female

DRUGS (1)
  1. STRENSIQ [Suspect]
     Active Substance: ASFOTASE ALFA
     Indication: PRODUCT USED FOR UNKNOWN INDICATION
     Dosage: UNK
     Route: 058
     Dates: end: 20160621

REACTIONS (8)
  - Thoracic vertebral fracture [Unknown]
  - Malaise [Unknown]
  - Muscle spasms [Unknown]
  - Bone pain [Unknown]
  - Fatigue [Unknown]
  - Osteomalacia [Unknown]
  - Osteoporosis [Unknown]
  - Insomnia [Unknown]

NARRATIVE: CASE EVENT DATE: 2016
